FAERS Safety Report 13783134 (Version 4)
Quarter: 2017Q3

REPORT INFORMATION
  Report Type: Spontaneous
  Country: US (occurrence: US)
  Receive Date: 20170724
  Receipt Date: 20170919
  Transmission Date: 20171127
  Serious: Yes (Other)
  Sender: FDA-Public Use
  Company Number: US-GLAXOSMITHKLINE-US2017113098

PATIENT
  Age: 62 Year
  Sex: Female

DRUGS (9)
  1. AMLODIPINE [Concomitant]
     Active Substance: AMLODIPINE BESYLATE
  2. CLONAZEPAM. [Concomitant]
     Active Substance: CLONAZEPAM
  3. ADVAIR DISKUS [Suspect]
     Active Substance: FLUTICASONE PROPIONATE\SALMETEROL XINAFOATE
     Dosage: 1 PUFF(S), BID
     Route: 055
  4. LEVOTHYROXINE. [Concomitant]
     Active Substance: LEVOTHYROXINE
  5. MONTELUKAST [Concomitant]
     Active Substance: MONTELUKAST SODIUM
  6. PANTOPRAZOLE [Concomitant]
     Active Substance: PANTOPRAZOLE
  7. ADVAIR DISKUS [Suspect]
     Active Substance: FLUTICASONE PROPIONATE\SALMETEROL XINAFOATE
     Indication: ASTHMA
     Dosage: 1 PUFF(S), BID
     Route: 055
  8. RANITIDINE. [Concomitant]
     Active Substance: RANITIDINE
  9. SIMVASTATIN. [Concomitant]
     Active Substance: SIMVASTATIN

REACTIONS (18)
  - Dyspnoea [Unknown]
  - Eye disorder [Unknown]
  - Productive cough [Unknown]
  - Dysphonia [Recovered/Resolved]
  - Drug ineffective [Unknown]
  - Respiratory tract infection [Unknown]
  - Swelling [Unknown]
  - Upper-airway cough syndrome [Unknown]
  - Wheezing [Unknown]
  - Product quality issue [Unknown]
  - Circumstance or information capable of leading to medication error [Unknown]
  - Sputum discoloured [Unknown]
  - Exposure via direct contact [Unknown]
  - Pneumonitis [Unknown]
  - Pyrexia [Unknown]
  - Wrong technique in device usage process [Unknown]
  - Chest pain [Unknown]
  - Product label confusion [Unknown]

NARRATIVE: CASE EVENT DATE: 201707
